FAERS Safety Report 8473756-9 (Version None)
Quarter: 2012Q2

REPORT INFORMATION
  Report Type: 
  Country: None (occurrence: None)
  Receive Date: 20120628
  Receipt Date: 20111024
  Transmission Date: 20120825
  Serious: Yes (Other)
  Sender: FDA-Public Use
  Company Number: US-MYLANLABS-2011S1022001

PATIENT
  Age: 41 Year
  Sex: Female

DRUGS (4)
  1. ZOCOR [Concomitant]
  2. CLOZAPINE [Suspect]
     Indication: SCHIZOAFFECTIVE DISORDER BIPOLAR TYPE
     Route: 048
     Dates: end: 20110929
  3. ACETAMINOPHEN [Concomitant]
  4. INSULIN [Concomitant]

REACTIONS (2)
  - CLONIC CONVULSION [None]
  - CONFUSIONAL STATE [None]
